FAERS Safety Report 5895615-8 (Version None)
Quarter: 2008Q3

REPORT INFORMATION
  Report Type: 
  Country: None (occurrence: None)
  Receive Date: 20080924
  Receipt Date: 20070719
  Transmission Date: 20090109
  Serious: Yes (Other)
  Sender: FDA-Public Use
  Company Number: US-ASTRAZENECA-2006UW20470

PATIENT
  Age: 474 Month
  Sex: Male

DRUGS (1)
  1. SEROQUEL [Suspect]
     Indication: AVERSION
     Route: 048
     Dates: start: 20031101, end: 20041201

REACTIONS (2)
  - DIABETES MELLITUS [None]
  - PANCREATITIS [None]
